FAERS Safety Report 15966068 (Version 1)
Quarter: 2019Q1

REPORT INFORMATION
  Report Type: Spontaneous
  Country: US (occurrence: US)
  Receive Date: 20190214
  Receipt Date: 20190214
  Transmission Date: 20190418
  Serious: Yes (Other)
  Sender: FDA-Public Use
  Company Number: None

PATIENT
  Age: 59 Year
  Sex: Female
  Weight: 60.3 kg

DRUGS (10)
  1. KETOFIFEN FUMARATE [Concomitant]
  2. LEVOTHYROXINE. [Concomitant]
     Active Substance: LEVOTHYROXINE
  3. CAPECITABINE. [Suspect]
     Active Substance: CAPECITABINE
     Indication: BREAST CANCER
     Route: 048
     Dates: start: 20180904
  4. OMEPRAZOLE. [Concomitant]
     Active Substance: OMEPRAZOLE
  5. PROCHLORPERAZINE. [Concomitant]
     Active Substance: PROCHLORPERAZINE
  6. COLCACE [Concomitant]
  7. GABAPENTIN. [Concomitant]
     Active Substance: GABAPENTIN
  8. IBUPROFEN. [Concomitant]
     Active Substance: IBUPROFEN
  9. CYCLOBENZAPRINE. [Concomitant]
     Active Substance: CYCLOBENZAPRINE
  10. MIRALAX [Concomitant]
     Active Substance: POLYETHYLENE GLYCOL 3350

REACTIONS (3)
  - Neutropenia [None]
  - Palmar-plantar erythrodysaesthesia syndrome [None]
  - Gastrointestinal disorder [None]
